FAERS Safety Report 4961268-6 (Version None)
Quarter: 2006Q1

REPORT INFORMATION
  Report Type: 
  Country: None (occurrence: None)
  Receive Date: 20060328
  Receipt Date: 20060310
  Transmission Date: 20060701
  Serious: Yes (Hospitalization)
  Sender: FDA-Public Use
  Company Number: 2006036465

PATIENT
  Sex: Male

DRUGS (1)
  1. GLADEM (SERTRALINE) [Suspect]
     Indication: ILL-DEFINED DISORDER

REACTIONS (1)
  - ATRIOVENTRICULAR BLOCK SECOND DEGREE [None]
